FAERS Safety Report 19154423 (Version 1)
Quarter: 2021Q2

REPORT INFORMATION
  Report Type: Spontaneous
  Country: NO (occurrence: NO)
  Receive Date: 20210419
  Receipt Date: 20210419
  Transmission Date: 20210717
  Serious: Yes (Hospitalization)
  Sender: FDA-Public Use
  Company Number: NO-TEVA-2021-NO-1901857

PATIENT
  Age: 86 Year
  Sex: Male
  Weight: 68 kg

DRUGS (5)
  1. VITAMIN C [Concomitant]
     Active Substance: ASCORBIC ACID
  2. TAMSULOSIN RATIOPHARM DEPOTTAB 0,4 MG [Suspect]
     Active Substance: TAMSULOSIN
     Indication: PROSTATIC DISORDER
     Dosage: .4 MILLIGRAM DAILY; 1 TABLET EACH DAY.
     Dates: start: 20210113, end: 20210315
  3. PARACET TAB 500 MG [Concomitant]
     Indication: BACK PAIN
     Dosage: 1000MILLIGRAM
     Dates: start: 2005
  4. CRANBERRY TABLETS [Concomitant]
  5. VITAMIN D [Concomitant]
     Active Substance: VITAMIN D NOS

REACTIONS (3)
  - Haematemesis [Unknown]
  - Syncope [Unknown]
  - Epistaxis [Unknown]

NARRATIVE: CASE EVENT DATE: 20210122
